FAERS Safety Report 4990126-6 (Version None)
Quarter: 2006Q2

REPORT INFORMATION
  Report Type: 
  Country: None (occurrence: None)
  Receive Date: 20060503
  Receipt Date: 20051025
  Transmission Date: 20061013
  Serious: Yes (Hospitalization, Disabling)
  Sender: FDA-Public Use
  Company Number: US-MERCK-0510USA09210

PATIENT
  Age: 64 Year
  Sex: Male
  Weight: 82 kg

DRUGS (18)
  1. VIOXX [Suspect]
     Indication: INTERVERTEBRAL DISC DEGENERATION
     Route: 048
     Dates: start: 20020101, end: 20041001
  2. VIOXX [Suspect]
     Route: 048
     Dates: start: 20011001
  3. VIOXX [Suspect]
     Indication: OSTEOARTHRITIS
     Route: 048
     Dates: start: 20020101, end: 20041001
  4. VIOXX [Suspect]
     Route: 048
     Dates: start: 20011001
  5. ASPIRIN [Concomitant]
     Route: 065
  6. TYLENOL ARTHRITIS EXTENDED RELIEF [Concomitant]
     Route: 065
  7. NITROGLYCERIN [Concomitant]
     Route: 061
  8. ZANTAC [Concomitant]
     Indication: GASTROOESOPHAGEAL REFLUX DISEASE
     Route: 065
  9. AVANDIA [Concomitant]
     Route: 065
  10. DARVOCET [Concomitant]
     Route: 065
  11. LISINOPRIL [Concomitant]
     Route: 065
  12. TERAZOSIN HYDROCHLORIDE [Concomitant]
     Route: 065
  13. ISOSORBIDE [Concomitant]
     Route: 065
  14. METFORMIN [Concomitant]
     Route: 065
  15. ZOCOR [Concomitant]
     Route: 048
  16. GLYBURIDE [Concomitant]
     Route: 065
  17. METOPROLOL [Concomitant]
     Route: 065
  18. PLENDIL [Suspect]
     Route: 048
     Dates: end: 20011101

REACTIONS (28)
  - ANGINA UNSTABLE [None]
  - ASTHENIA [None]
  - ATRIAL FLUTTER [None]
  - ATRIOVENTRICULAR BLOCK FIRST DEGREE [None]
  - BRADYCARDIA [None]
  - CARDIAC FAILURE CONGESTIVE [None]
  - CARDIOVASCULAR DISORDER [None]
  - CEREBROVASCULAR ACCIDENT [None]
  - CHEST PAIN [None]
  - CORONARY ARTERY DISEASE [None]
  - DIASTOLIC DYSFUNCTION [None]
  - DISEASE RECURRENCE [None]
  - DIZZINESS [None]
  - ELECTROCARDIOGRAM POOR R-WAVE PROGRESSION [None]
  - HYPOGLYCAEMIA [None]
  - HYPOTENSION [None]
  - MYOCARDIAL INFARCTION [None]
  - NAUSEA [None]
  - NECK PAIN [None]
  - PAIN IN EXTREMITY [None]
  - PARAESTHESIA [None]
  - PULMONARY EMBOLISM [None]
  - RENAL FAILURE [None]
  - SUPRAVENTRICULAR TACHYCARDIA [None]
  - TACHYARRHYTHMIA [None]
  - VENTRICULAR HYPERTROPHY [None]
  - VISION BLURRED [None]
  - WEIGHT INCREASED [None]
